FAERS Safety Report 8990496 (Version 1)
Quarter: 2012Q4

REPORT INFORMATION
  Report Type: Report from Study
  Country: CA (occurrence: CA)
  Receive Date: 20121228
  Receipt Date: 20121228
  Transmission Date: 20130627
  Serious: Yes (Hospitalization, Other)
  Sender: FDA-Public Use
  Company Number: CA-ROCHE-1173085

PATIENT
  Sex: Female

DRUGS (4)
  1. XOLAIR [Suspect]
     Indication: ASTHMA
     Dosage: 300 mg, UNK
     Route: 058
     Dates: start: 20050927, end: 20060403
  2. XOLAIR [Suspect]
     Dosage: 300 mg, UNK
     Route: 058
     Dates: start: 20060627
  3. XOLAIR [Suspect]
     Route: 065
     Dates: start: 20060221
  4. ADVAIR [Concomitant]
     Indication: PRODUCT USED FOR UNKNOWN INDICATION

REACTIONS (18)
  - Viral infection [Recovering/Resolving]
  - Respiratory tract congestion [Not Recovered/Not Resolved]
  - Productive cough [Not Recovered/Not Resolved]
  - General physical health deterioration [Not Recovered/Not Resolved]
  - Chest discomfort [Not Recovered/Not Resolved]
  - Asthma [Recovering/Resolving]
  - Dyspnoea [Not Recovered/Not Resolved]
  - Disease progression [Unknown]
  - Drug ineffective [Unknown]
  - Insomnia [Unknown]
  - Panic attack [Unknown]
  - Wound [Unknown]
  - Crepitations [Unknown]
  - Pain [Unknown]
  - Sleep disorder [Unknown]
  - Cough [Not Recovered/Not Resolved]
  - Dizziness [Unknown]
  - Nail disorder [Unknown]
